FAERS Safety Report 7603185-9 (Version None)
Quarter: 2011Q3

REPORT INFORMATION
  Report Type: 
  Country: None (occurrence: None)
  Receive Date: 20110712
  Receipt Date: 20110630
  Transmission Date: 20111222
  Serious: Yes (Hospitalization)
  Sender: FDA-Public Use
  Company Number: US-AMGEN-USASP2011025592

PATIENT
  Age: 58 Year
  Sex: Female

DRUGS (1)
  1. ENBREL [Suspect]
     Indication: RHEUMATOID ARTHRITIS
     Dosage: 50 MG, QWK
     Dates: start: 20000919

REACTIONS (9)
  - EYE PAIN [None]
  - CARDIAC OPERATION [None]
  - RECTAL HAEMORRHAGE [None]
  - HEADACHE [None]
  - VOMITING [None]
  - INJECTION SITE REACTION [None]
  - RHEUMATOID ARTHRITIS [None]
  - INJECTION SITE PAIN [None]
  - EYE DISORDER [None]
